FAERS Safety Report 15315279 (Version 1)
Quarter: 2018Q3

REPORT INFORMATION
  Report Type: Spontaneous
  Country: TJ (occurrence: TJ)
  Receive Date: 20180824
  Receipt Date: 20180824
  Transmission Date: 20181010
  Serious: Yes (Death, Other)
  Sender: FDA-Public Use
  Company Number: TJ-JNJFOC-20180821737

PATIENT
  Age: 64 Year
  Sex: Male
  Weight: 36 kg

DRUGS (13)
  1. CLOFAZIMINE [Suspect]
     Active Substance: CLOFAZIMINE
     Indication: TUBERCULOSIS
     Dosage: ONCE
     Route: 048
     Dates: start: 20180309, end: 2018
  2. PROTIONAMIDE [Suspect]
     Active Substance: PROTIONAMIDE
     Indication: TUBERCULOSIS
     Route: 048
     Dates: start: 20180309
  3. PARA?AMINOSALICYLIC ACID [Suspect]
     Active Substance: AMINOSALICYLIC ACID
     Indication: TUBERCULOSIS
     Dosage: ONCE
     Route: 048
     Dates: start: 20180119, end: 20180309
  4. LEVOFLOXACIN. [Suspect]
     Active Substance: LEVOFLOXACIN
     Indication: TUBERCULOSIS
     Dosage: ONCE
     Route: 048
     Dates: start: 20180119
  5. PYRAZINAMIDE. [Suspect]
     Active Substance: PYRAZINAMIDE
     Indication: TUBERCULOSIS
     Dosage: ONCE
     Route: 048
     Dates: start: 20180119
  6. CLOFAZIMINE [Suspect]
     Active Substance: CLOFAZIMINE
     Indication: TUBERCULOSIS
     Dosage: ONCE
     Route: 048
     Dates: start: 20180424
  7. CAPREOMICIN [Suspect]
     Active Substance: CAPREOMYCIN
     Indication: TUBERCULOSIS
     Dosage: ONCE
     Route: 048
     Dates: start: 20180119, end: 20180309
  8. BEDAQUILINE [Suspect]
     Active Substance: BEDAQUILINE
     Indication: TUBERCULOSIS
     Dosage: ONCE
     Route: 048
     Dates: start: 20180309, end: 20180322
  9. PROTIONAMIDE [Suspect]
     Active Substance: PROTIONAMIDE
     Indication: TUBERCULOSIS
     Dosage: ONCE
     Route: 048
     Dates: start: 20180119, end: 201803
  10. BEDAQUILINE [Suspect]
     Active Substance: BEDAQUILINE
     Indication: TUBERCULOSIS
     Route: 048
     Dates: start: 20180323
  11. LINEZOLID. [Suspect]
     Active Substance: LINEZOLID
     Indication: TUBERCULOSIS
     Dosage: ONCE
     Route: 048
     Dates: start: 20180309
  12. MOXIFLOXACIN. [Suspect]
     Active Substance: MOXIFLOXACIN
     Indication: TUBERCULOSIS
     Route: 065
  13. CYCLOSERIN [Suspect]
     Active Substance: CYCLOSERINE
     Indication: TUBERCULOSIS
     Route: 048
     Dates: start: 20180119

REACTIONS (4)
  - Hypochromic anaemia [Not Recovered/Not Resolved]
  - Bronchitis [Unknown]
  - Cardiac failure acute [Fatal]
  - Asthma [Unknown]

NARRATIVE: CASE EVENT DATE: 2018
